FAERS Safety Report 17135221 (Version 1)
Quarter: 2019Q4

REPORT INFORMATION
  Report Type: Spontaneous
  Country: SE (occurrence: SE)
  Receive Date: 20191210
  Receipt Date: 20191210
  Transmission Date: 20200122
  Serious: Yes (Hospitalization)
  Sender: FDA-Public Use
  Company Number: SE-ASTRAZENECA-2019SF73281

PATIENT
  Age: 34 Year
  Sex: Female

DRUGS (5)
  1. SEROQUEL [Suspect]
     Active Substance: QUETIAPINE FUMARATE
     Dosage: 300.0MG UNKNOWN
     Route: 048
     Dates: start: 20180917, end: 20180917
  2. LERGIGAN [PROMETHAZINE HYDROCHLORIDE] [Suspect]
     Active Substance: PROMETHAZINE HYDROCHLORIDE
     Dosage: AMOUNT OF 20500.0MG UNKNOWN
     Route: 048
     Dates: start: 20180917, end: 20180917
  3. THERALEN [Suspect]
     Active Substance: TRIMEPRAZINE
     Dosage: 2.0ML UNKNOWN
     Route: 048
     Dates: start: 20180917, end: 20180917
  4. IMOVANE [Suspect]
     Active Substance: ZOPICLONE
     Dosage: MAXIMUM AMOUNT OF 5
     Route: 048
     Dates: start: 20180917, end: 20180917
  5. PROPAVAN [Suspect]
     Active Substance: PROPIOMAZINE
     Dosage: AMOUNT OF 250.0MG UNKNOWN
     Route: 048
     Dates: start: 20180917, end: 20180917

REACTIONS (3)
  - Fatigue [Unknown]
  - Intentional overdose [Unknown]
  - Intentional self-injury [Unknown]

NARRATIVE: CASE EVENT DATE: 20180917
